FAERS Safety Report 10910704 (Version 1)
Quarter: 2015Q1

REPORT INFORMATION
  Report Type: Spontaneous
  Country: US (occurrence: US)
  Receive Date: 20150312
  Receipt Date: 20150312
  Transmission Date: 20150721
  Serious: No
  Sender: FDA-Public Use
  Company Number: US-SA-2015SA011148

PATIENT
  Age: 56 Year
  Sex: Female

DRUGS (2)
  1. NASACORT ALLERGY 24HR [Suspect]
     Active Substance: TRIAMCINOLONE ACETONIDE
     Indication: SINUS DISORDER
     Dosage: FREQUENCY: 3 TIMES
     Route: 065
     Dates: start: 20150117
  2. NASACORT ALLERGY 24HR [Suspect]
     Active Substance: TRIAMCINOLONE ACETONIDE
     Indication: FACIAL PAIN
     Dosage: FREQUENCY: 3 TIMES
     Route: 065
     Dates: start: 20150117

REACTIONS (3)
  - Fatigue [Unknown]
  - Chest discomfort [Unknown]
  - Feeling jittery [Unknown]
